FAERS Safety Report 6106293-7 (Version None)
Quarter: 2009Q1

REPORT INFORMATION
  Report Type: 
  Country: None (occurrence: None)
  Receive Date: 20090306
  Receipt Date: 20090226
  Transmission Date: 20090719
  Serious: Yes (Hospitalization)
  Sender: FDA-Public Use
  Company Number: PHHY2009DE07316

PATIENT
  Age: 83 Year
  Sex: Female

DRUGS (7)
  1. EXFORGE [Suspect]
     Indication: HYPERTENSION
     Dosage: 1 DF, QD
     Route: 048
  2. CALCILAC KT [Interacting]
     Indication: OSTEOPOROSIS
     Dosage: 500 MG, BID
     Route: 048
     Dates: end: 20080929
  3. REPAGLINIDE [Suspect]
     Indication: TYPE 2 DIABETES MELLITUS
     Dosage: 0.5 MG, BID
     Route: 048
     Dates: end: 20080929
  4. ASPIRIN [Interacting]
     Indication: PROPHYLAXIS
     Dosage: 100 MG, ONCE/SINGLE
     Route: 048
  5. CARBAMAZEPINE [Interacting]
     Indication: DEPRESSION
     Dosage: 200 MG, ONCE/SINGLE
     Route: 048
  6. TORSEMIDE [Interacting]
     Indication: HYPERTENSION
     Dosage: 10 MG, UNK
     Route: 048
  7. METHIZOL [Concomitant]
     Indication: TOXIC NODULAR GOITRE
     Dosage: 2.5 MG, ONCE/SINGLE
     Route: 048
     Dates: end: 20080801

REACTIONS (4)
  - BLOOD CALCIUM INCREASED [None]
  - DEHYDRATION [None]
  - DIARRHOEA [None]
  - DRUG INTERACTION [None]
